FAERS Safety Report 23782681 (Version 10)
Quarter: 2024Q4

REPORT INFORMATION
  Report Type: Spontaneous
  Country: US (occurrence: US)
  Receive Date: 20240425
  Receipt Date: 20241007
  Transmission Date: 20250115
  Serious: No
  Sender: PFIZER
  Company Number: US-PFIZER INC-202400084556

PATIENT
  Age: 13 Year
  Sex: Male
  Weight: 45.36 kg

DRUGS (3)
  1. GENOTROPIN [Suspect]
     Active Substance: SOMATROPIN
     Indication: Growth hormone deficiency
     Dosage: 2 MG, DAILY(EVERY NIGHT)
     Route: 030
     Dates: start: 202211
  2. GENOTROPIN [Suspect]
     Active Substance: SOMATROPIN
     Dosage: 2 MG, DAILY(EVERY NIGHT)
     Route: 030
  3. FOCALIN [Concomitant]
     Active Substance: DEXMETHYLPHENIDATE HYDROCHLORIDE
     Indication: Disturbance in attention
     Dosage: 10 MG, DAILY (IN THE MORNING)
     Dates: start: 2019

REACTIONS (7)
  - Wrong technique in device usage process [Unknown]
  - Device information output issue [Unknown]
  - Device mechanical issue [Unknown]
  - Drug dose omission by device [Unknown]
  - Incorrect route of product administration [Unknown]
  - Expired device used [Unknown]
  - Device breakage [Unknown]
